FAERS Safety Report 8066076-8 (Version None)
Quarter: 2012Q1

REPORT INFORMATION
  Report Type: 
  Country: None (occurrence: None)
  Receive Date: 20120124
  Receipt Date: 20120116
  Transmission Date: 20120608
  Serious: Yes (Other)
  Sender: FDA-Public Use
  Company Number: DE-ROCHE-1032965

PATIENT
  Sex: Male

DRUGS (2)
  1. LUCENTIS [Suspect]
     Dates: start: 20111201
  2. LUCENTIS [Suspect]
     Indication: DIABETIC RETINAL OEDEMA
     Route: 050
     Dates: start: 20111101

REACTIONS (1)
  - MYOCARDIAL INFARCTION [None]
